FAERS Safety Report 18162354 (Version 1)
Quarter: 2020Q3

REPORT INFORMATION
  Report Type: Spontaneous
  Country: TR (occurrence: TR)
  Receive Date: 20200818
  Receipt Date: 20200818
  Transmission Date: 20201103
  Serious: Yes (Life-Threatening, Hospitalization, Other)
  Sender: FDA-Public Use
  Company Number: TR-BAUSCH-BL-2020-023380

PATIENT
  Age: 16 Year
  Sex: Male

DRUGS (2)
  1. TRIENTINE [Suspect]
     Active Substance: TRIENTINE
     Indication: NERVOUS SYSTEM DISORDER
     Route: 048
  2. TRIENTINE [Suspect]
     Active Substance: TRIENTINE
     Indication: TREMOR

REACTIONS (2)
  - Rhabdomyolysis [Recovered/Resolved]
  - Acute kidney injury [Recovered/Resolved]
